FAERS Safety Report 5063219-5 (Version None)
Quarter: 2006Q3

REPORT INFORMATION
  Report Type: 
  Country: None (occurrence: None)
  Receive Date: 20060725
  Receipt Date: 20060725
  Transmission Date: 20061208
  Serious: Yes (Hospitalization)
  Sender: FDA-Public Use
  Company Number: None

PATIENT
  Age: 14 Year
  Sex: Female
  Weight: 53.0709 kg

DRUGS (2)
  1. OXCARBAZEPINE [Suspect]
     Indication: MOOD ALTERED
     Dosage: 600 MG PO BID
     Route: 048
     Dates: start: 20060508, end: 20060527
  2. DIPHENHYDRAMINE HCL [Concomitant]

REACTIONS (9)
  - NEUTROPENIA [None]
  - PRURITUS GENERALISED [None]
  - PYREXIA [None]
  - RASH [None]
  - RASH GENERALISED [None]
  - RASH PRURITIC [None]
  - SWELLING FACE [None]
  - UPPER RESPIRATORY TRACT INFECTION [None]
  - VIRAL INFECTION [None]
